APPROVED DRUG PRODUCT: NARCAN
Active Ingredient: NALOXONE HYDROCHLORIDE
Strength: 0.4MG/ML **Federal Register determination that product was not discontinued or withdrawn for safety or effectiveness reasons**
Dosage Form/Route: INJECTABLE;INJECTION
Application: N016636 | Product #001
Applicant: ADAPT PHARMA OPERATIONS LTD
Approved: Approved Prior to Jan 1, 1982 | RLD: Yes | RS: No | Type: DISCN